FAERS Safety Report 13966309 (Version 1)
Quarter: 2017Q3

REPORT INFORMATION
  Report Type: Spontaneous
  Country: US (occurrence: US)
  Receive Date: 20170913
  Receipt Date: 20170913
  Transmission Date: 20171128
  Serious: Yes (Other)
  Sender: FDA-Public Use
  Company Number: US-MAYNE PHARMA-2017MYN001607

PATIENT

DRUGS (1)
  1. CLONIDINE. [Suspect]
     Active Substance: CLONIDINE
     Indication: HYPERTENSION
     Dosage: .1 MG Q 3 DAYS
     Route: 061

REACTIONS (3)
  - Anaphylactic reaction [Recovered/Resolved]
  - Product substitution issue [Unknown]
  - Product formulation issue [Unknown]

NARRATIVE: CASE EVENT DATE: 201708
